FAERS Safety Report 8144674-0 (Version None)
Quarter: 2012Q1

REPORT INFORMATION
  Report Type: 
  Country: None (occurrence: None)
  Receive Date: 20120217
  Receipt Date: 20120210
  Transmission Date: 20120608
  Serious: Yes (Other)
  Sender: FDA-Public Use
  Company Number: US-JNJFOC-20120206268

PATIENT
  Sex: Male
  Weight: 104.33 kg

DRUGS (6)
  1. FENTANYL-100 [Suspect]
     Route: 062
     Dates: start: 20120125
  2. CODEINE SULFATE [Concomitant]
     Route: 048
  3. VENLAFAXINE [Concomitant]
     Route: 048
  4. LORAZEPAM [Concomitant]
     Indication: HYPERTENSION
     Dosage: UPTO 5 PER DAY
     Route: 048
  5. FENTANYL-100 [Suspect]
     Indication: ACUTE POLYNEUROPATHY
     Route: 062
     Dates: start: 20110801, end: 20120101
  6. DURAGESIC-100 [Suspect]
     Indication: ACUTE POLYNEUROPATHY
     Route: 062
     Dates: start: 20110801, end: 20120101

REACTIONS (5)
  - INAPPROPRIATE SCHEDULE OF DRUG ADMINISTRATION [None]
  - BURSITIS [None]
  - OSTEOARTHRITIS [None]
  - ARTHROPATHY [None]
  - HYPERSOMNIA [None]
